FAERS Safety Report 7072560-6 (Version None)
Quarter: 2010Q4

REPORT INFORMATION
  Report Type: 
  Country: None (occurrence: None)
  Receive Date: 20101029
  Receipt Date: 20100211
  Transmission Date: 20110411
  Serious: No
  Sender: FDA-Public Use
  Company Number: A0844035A

PATIENT
  Age: 65 Year
  Sex: Female

DRUGS (8)
  1. ADVAIR DISKUS 100/50 [Suspect]
     Indication: ASTHMA
     Dosage: 1PUFF TWICE PER DAY
     Route: 055
     Dates: start: 20090901
  2. ALBUTEROL [Concomitant]
  3. MUCINEX [Concomitant]
  4. SINGULAIR [Concomitant]
  5. FLONASE [Concomitant]
  6. XANAX [Concomitant]
  7. FOSAMAX [Concomitant]
  8. CLOTRIMAZOLE TROCHES [Concomitant]

REACTIONS (8)
  - ADVERSE EVENT [None]
  - CANDIDIASIS [None]
  - CHEST DISCOMFORT [None]
  - DIZZINESS [None]
  - DRUG INEFFECTIVE [None]
  - DYSPHONIA [None]
  - OROPHARYNGEAL PAIN [None]
  - THROAT IRRITATION [None]
